FAERS Safety Report 7327145-0 (Version None)
Quarter: 2011Q1

REPORT INFORMATION
  Report Type: 
  Country: None (occurrence: None)
  Receive Date: 20110302
  Receipt Date: 20110228
  Transmission Date: 20110831
  Serious: Yes (Other)
  Sender: FDA-Public Use
  Company Number: JP-PFIZER INC-2011037279

PATIENT
  Age: 59 Year
  Sex: Male

DRUGS (3)
  1. CELECOXIB [Concomitant]
     Indication: SPINAL COLUMN STENOSIS
  2. LYRICA [Suspect]
     Dosage: 75 MG/DAY
     Route: 048
  3. LYRICA [Suspect]
     Indication: SPINAL COLUMN STENOSIS
     Dosage: 25 MG/DAY
     Route: 048

REACTIONS (2)
  - SURGERY [None]
  - EPISTAXIS [None]
